FAERS Safety Report 13300892 (Version 2)
Quarter: 2017Q2

REPORT INFORMATION
  Report Type: Spontaneous
  Country: US (occurrence: US)
  Receive Date: 20170307
  Receipt Date: 20170512
  Transmission Date: 20170830
  Serious: Yes (Death)
  Sender: FDA-Public Use
  Company Number: US-TAIHO ONCOLOGY INC-EU-2017-00382

PATIENT
  Age: 73 Year
  Sex: Male
  Weight: 81.72 kg

DRUGS (5)
  1. POTASSIUM CHLORIDE. [Concomitant]
     Active Substance: POTASSIUM CHLORIDE
  2. MARINOL [Concomitant]
     Active Substance: DRONABINOL
     Dosage: NI
  3. LONSURF [Suspect]
     Active Substance: TIPIRACIL HYDROCHLORIDE\TRIFLURIDINE
     Indication: COLON CANCER
     Dosage: CYCLE 9 STARTED ON 02/FEB/2017
     Route: 048
     Dates: start: 20160503, end: 20170206
  4. ONDANSETRON [Concomitant]
     Active Substance: ONDANSETRON
  5. VITAMIN B COMPLEX [Concomitant]
     Active Substance: CYANOCOBALAMIN\DEXPANTHENOL\NIACINAMIDE\PYRIDOXINE HYDROCHLORIDE\RIBOFLAVIN 5^-PHOSPHATE SODIUM\THIAMINE HYDROCHLORIDE\VITAMIN B COMPLEX
     Dosage: NI

REACTIONS (6)
  - Increased appetite [Unknown]
  - Fatigue [Unknown]
  - Disease progression [Fatal]
  - Dyspnoea [Unknown]
  - Asthenia [Unknown]
  - Anaemia [Not Recovered/Not Resolved]

NARRATIVE: CASE EVENT DATE: 20170216
